FAERS Safety Report 13406760 (Version 2)
Quarter: 2017Q2

REPORT INFORMATION
  Report Type: Report from Study
  Country: US (occurrence: US)
  Receive Date: 20170405
  Receipt Date: 20170421
  Transmission Date: 20170830
  Serious: Yes (Hospitalization, Other)
  Sender: FDA-Public Use
  Company Number: US-GILEAD-2017-0263775

PATIENT
  Age: 59 Year
  Sex: Female

DRUGS (1)
  1. RANOLAZINE. [Suspect]
     Active Substance: RANOLAZINE
     Indication: ANGINA PECTORIS
     Dosage: 500 MG, UNK
     Route: 048
     Dates: start: 2012

REACTIONS (6)
  - Cholecystectomy [Recovered/Resolved]
  - Spinal cord haematoma [Unknown]
  - Tracheostomy [Unknown]
  - Gastrointestinal tube insertion [Unknown]
  - Renal cancer [Unknown]
  - Mechanical ventilation [Unknown]
